FAERS Safety Report 24251942 (Version 2)
Quarter: 2024Q3

REPORT INFORMATION
  Report Type: Spontaneous
  Country: JP (occurrence: JP)
  Receive Date: 20240827
  Receipt Date: 20240909
  Transmission Date: 20241016
  Serious: Yes (Hospitalization)
  Sender: TEVA
  Company Number: JP-TEVA-VS-3235272

PATIENT
  Age: 71 Year
  Sex: Female

DRUGS (5)
  1. PREDNISOLONE [Suspect]
     Active Substance: PREDNISOLONE
     Indication: Immune-mediated myositis
     Route: 065
  2. IMMUNE GLOBULIN NOS [Suspect]
     Active Substance: IMMUNE GLOBULIN NOS
     Indication: Immune-mediated myositis
     Dosage: HIGH DOSE
     Route: 042
  3. CYCLOPHOSPHAMIDE [Suspect]
     Active Substance: CYCLOPHOSPHAMIDE
     Indication: Immune-mediated myositis
     Route: 042
     Dates: end: 202206
  4. AZATHIOPRINE [Suspect]
     Active Substance: AZATHIOPRINE
     Indication: Immune-mediated myositis
     Route: 065
  5. TACROLIMUS [Suspect]
     Active Substance: TACROLIMUS
     Indication: Immune-mediated myositis
     Route: 065

REACTIONS (1)
  - Alveolar proteinosis [Unknown]
